FAERS Safety Report 17091507 (Version 3)
Quarter: 2019Q4

REPORT INFORMATION
  Report Type: Spontaneous
  Country: US (occurrence: US)
  Receive Date: 20191129
  Receipt Date: 20191210
  Transmission Date: 20200122
  Serious: Yes (Other)
  Sender: FDA-Public Use
  Company Number: US-SUNOVION-2019SUN005097

PATIENT
  Sex: Male

DRUGS (3)
  1. LONHALA MAGNAIR [Suspect]
     Active Substance: GLYCOPYRROLATE
     Indication: PRODUCT USED FOR UNKNOWN INDICATION
     Dosage: UNK
     Route: 055
  2. ALBUTEROL. [Concomitant]
     Active Substance: ALBUTEROL
     Dosage: UNK
     Route: 055
  3. DULERA [Concomitant]
     Active Substance: FORMOTEROL FUMARATE DIHYDRATE\MOMETASONE FUROATE
     Dosage: UNK
     Route: 055

REACTIONS (8)
  - Chronic obstructive pulmonary disease [Unknown]
  - Cough [Unknown]
  - Vision blurred [Unknown]
  - Pollakiuria [Unknown]
  - Productive cough [Unknown]
  - Lower respiratory tract congestion [Unknown]
  - Atypical pneumonia [Unknown]
  - Drug ineffective [Unknown]
